FAERS Safety Report 5716302-2 (Version None)
Quarter: 2008Q2

REPORT INFORMATION
  Report Type: 
  Country: None (occurrence: None)
  Receive Date: 20080424
  Receipt Date: 20080422
  Transmission Date: 20081010
  Serious: Yes (Hospitalization)
  Sender: FDA-Public Use
  Company Number: D0056650A

PATIENT
  Age: 46 Year
  Sex: Male
  Weight: 74 kg

DRUGS (8)
  1. ATRIANCE [Suspect]
     Indication: NON-HODGKIN'S LYMPHOMA
     Dosage: 1500MGM2 PER DAY
     Route: 042
     Dates: start: 20080320, end: 20080324
  2. IFOSFAMIDE [Suspect]
     Indication: NON-HODGKIN'S LYMPHOMA
     Dosage: 800MGM2 PER DAY
     Route: 042
     Dates: start: 20080320, end: 20080324
  3. SEBIVO [Suspect]
     Dosage: 650MG PER DAY
     Route: 065
     Dates: start: 20080305, end: 20080326
  4. TAVANIC [Suspect]
     Dosage: 500MG PER DAY
     Route: 065
     Dates: start: 20080322, end: 20080326
  5. COTRIM DS [Concomitant]
     Route: 065
  6. PANTOZOL [Concomitant]
     Route: 065
  7. TRAMADOL HCL [Concomitant]
     Route: 048
  8. SODIUM CHLORIDE, SODIUM BICARBONATE, POTASSIUM CHLORIDE, GLUCOSE [Concomitant]
     Dosage: 1.5L PER DAY
     Route: 042
     Dates: start: 20080320, end: 20080324

REACTIONS (9)
  - ASPARTATE AMINOTRANSFERASE INCREASED [None]
  - BLOOD CREATINE PHOSPHOKINASE INCREASED [None]
  - BLOOD CREATINE PHOSPHOKINASE MB INCREASED [None]
  - BLOOD LACTATE DEHYDROGENASE INCREASED [None]
  - C-REACTIVE PROTEIN INCREASED [None]
  - HEPATIC ENZYME INCREASED [None]
  - MUSCULAR WEAKNESS [None]
  - MYALGIA [None]
  - MYOGLOBIN BLOOD INCREASED [None]
